FAERS Safety Report 5119088-8 (Version None)
Quarter: 2006Q3

REPORT INFORMATION
  Report Type: 
  Country: None (occurrence: None)
  Receive Date: 20060927
  Receipt Date: 20060920
  Transmission Date: 20061208
  Serious: Yes (Other)
  Sender: FDA-Public Use
  Company Number: 2006113012

PATIENT
  Age: 57 Year
  Sex: Male
  Weight: 83.9154 kg

DRUGS (3)
  1. BENADRYL [Suspect]
     Indication: HYPERSENSITIVITY
     Dosage: 2 TABLETS PRN, ORAL
     Route: 048
     Dates: end: 20060901
  2. DYAZIDE [Concomitant]
  3. ASPIRIN [Concomitant]

REACTIONS (5)
  - CONDITION AGGRAVATED [None]
  - HYPERSENSITIVITY [None]
  - OEDEMA PERIPHERAL [None]
  - PHARYNGEAL OEDEMA [None]
  - SWOLLEN TONGUE [None]
